FAERS Safety Report 4344793-0 (Version None)
Quarter: 2004Q2

REPORT INFORMATION
  Report Type: 
  Country: None (occurrence: None)
  Receive Date: 20040420
  Receipt Date: 20040408
  Transmission Date: 20050107
  Serious: Yes (Other)
  Sender: FDA-Public Use
  Company Number: DE-SHR-04-023722

PATIENT
  Sex: Male

DRUGS (1)
  1. MAGNEVIST [Suspect]
     Indication: X-RAY
     Dosage: 1 DOSE, INTRACORONARY
     Route: 022

REACTIONS (1)
  - VENTRICULAR FIBRILLATION [None]
